FAERS Safety Report 13472838 (Version 1)
Quarter: 2017Q2

REPORT INFORMATION
  Report Type: Spontaneous
  Country: US (occurrence: US)
  Receive Date: 20170424
  Receipt Date: 20170424
  Transmission Date: 20170830
  Serious: Yes (Other)
  Sender: FDA-Public Use
  Company Number: US-PFIZER INC-2017173486

PATIENT
  Sex: Female

DRUGS (2)
  1. DILANTIN [Suspect]
     Active Substance: PHENYTOIN
     Dosage: 3 DF, DAILY
  2. DILANTIN [Suspect]
     Active Substance: PHENYTOIN
     Dosage: 2 DF, DAILY

REACTIONS (4)
  - Seizure [Unknown]
  - Anticonvulsant drug level decreased [Unknown]
  - Condition aggravated [Unknown]
  - Anticonvulsant drug level increased [Unknown]
